FAERS Safety Report 5521606-2 (Version None)
Quarter: 2007Q4

REPORT INFORMATION
  Report Type: 
  Country: None (occurrence: None)
  Receive Date: 20071115
  Receipt Date: 20071101
  Transmission Date: 20080405
  Serious: Yes (Other)
  Sender: FDA-Public Use
  Company Number: 230683K07CAN

PATIENT
  Sex: Female

DRUGS (5)
  1. REBIF [Suspect]
     Indication: MULTIPLE SCLEROSIS
     Dates: start: 20011022, end: 20070901
  2. REBIF [Suspect]
     Indication: MULTIPLE SCLEROSIS
     Dates: start: 20070924, end: 20071022
  3. BACLOFEN [Concomitant]
  4. DIXARIT (CLONIDINE HYDROCHLORIDE) [Concomitant]
  5. ARIMIDEX [Concomitant]

REACTIONS (2)
  - BREAST LUMP REMOVAL [None]
  - RASH [None]
